FAERS Safety Report 4343182-2 (Version None)
Quarter: 2004Q2

REPORT INFORMATION
  Report Type: 
  Country: None (occurrence: None)
  Receive Date: 20040421
  Receipt Date: 20040308
  Transmission Date: 20050107
  Serious: Yes (Other)
  Sender: FDA-Public Use
  Company Number: PHFR2004GB01360

PATIENT
  Age: 62 Year
  Sex: Male

DRUGS (3)
  1. DICLOFENAC SODIUM [Suspect]
     Indication: ARTHRALGIA
     Dosage: 75 MG/DAY
     Route: 048
  2. SULFASALAZINE [Suspect]
     Indication: CROHN'S DISEASE
     Dosage: 4G/DAY
     Route: 048
     Dates: start: 19910101
  3. RANITIDINE [Concomitant]
     Dosage: 150 MG, BID
     Route: 065

REACTIONS (5)
  - ATRIAL FIBRILLATION [None]
  - IRON DEFICIENCY ANAEMIA [None]
  - MEAN CELL HAEMOGLOBIN CONCENTRATION DECREASED [None]
  - MEAN CELL HAEMOGLOBIN DECREASED [None]
  - MEAN CELL VOLUME DECREASED [None]
